FAERS Safety Report 7548157-8 (Version None)
Quarter: 2011Q2

REPORT INFORMATION
  Report Type: 
  Country: None (occurrence: None)
  Receive Date: 20110608
  Receipt Date: 20110526
  Transmission Date: 20111010
  Serious: Yes (Other)
  Sender: FDA-Public Use
  Company Number: JHP201100135

PATIENT
  Age: 55 Year
  Sex: Female

DRUGS (5)
  1. PROPOFOL [Concomitant]
  2. EPINEPHRINE [Suspect]
     Indication: ANAPHYLACTIC SHOCK
     Dosage: 0.5 MG/HR, INTRAVENOUS
     Route: 042
  3. SUFENTANIL CITRATE [Concomitant]
  4. CISATRACURIUM (CISATRACURIUM) [Concomitant]
  5. EPHEDRINE (EPHEDRINE HYDROCHLORIDE) [Concomitant]

REACTIONS (5)
  - STRESS CARDIOMYOPATHY [None]
  - CARDIOGENIC SHOCK [None]
  - TROPONIN T INCREASED [None]
  - ACUTE PULMONARY OEDEMA [None]
  - ARTERIOSCLEROSIS CORONARY ARTERY [None]
